FAERS Safety Report 9701522 (Version 2)
Quarter: 2013Q4

REPORT INFORMATION
  Report Type: Spontaneous
  Country: US (occurrence: None)
  Receive Date: 20131119
  Receipt Date: 20131125
  Transmission Date: 20140711
  Serious: Yes (Other)
  Sender: FDA-Public Use
  Company Number: 2013AP009786

PATIENT
  Age: 44 Year
  Sex: Female
  Weight: 86 kg

DRUGS (1)
  1. FERRIPROX [Suspect]
     Indication: THALASSAEMIA
     Route: 048
     Dates: start: 20120917, end: 20131004

REACTIONS (1)
  - Haemoglobin decreased [None]
